FAERS Safety Report 15357122 (Version 1)
Quarter: 2018Q3

REPORT INFORMATION
  Report Type: Spontaneous
  Country: AT (occurrence: AT)
  Receive Date: 20180906
  Receipt Date: 20180906
  Transmission Date: 20181010
  Serious: Yes (Other)
  Sender: FDA-Public Use
  Company Number: PHHY2018AT088214

PATIENT
  Sex: Female

DRUGS (3)
  1. EXFORGE [Suspect]
     Active Substance: AMLODIPINE BESYLATE\VALSARTAN
     Dosage: 0.5 DF, UNK
     Route: 065
  2. EXFORGE [Suspect]
     Active Substance: AMLODIPINE BESYLATE\VALSARTAN
     Dosage: 1 DF, QD (12.5/160)
     Route: 065
  3. EXFORGE [Suspect]
     Active Substance: AMLODIPINE BESYLATE\VALSARTAN
     Indication: PRODUCT USED FOR UNKNOWN INDICATION
     Dosage: 1 DF, QD (25/160)
     Route: 065

REACTIONS (10)
  - Iron deficiency [Unknown]
  - Chest discomfort [Unknown]
  - Myalgia [Unknown]
  - Hypotension [Unknown]
  - Wrong technique in product usage process [Unknown]
  - Pneumonia [Recovered/Resolved]
  - Muscle tightness [Unknown]
  - Asthenia [Unknown]
  - Back pain [Unknown]
  - Paraesthesia [Unknown]
